FAERS Safety Report 15536165 (Version 1)
Quarter: 2018Q4

REPORT INFORMATION
  Report Type: Spontaneous
  Country: US (occurrence: US)
  Receive Date: 20181022
  Receipt Date: 20181022
  Transmission Date: 20190205
  Serious: No
  Sender: FDA-Public Use
  Company Number: US-BAYER-2018-195814

PATIENT
  Age: 80 Year
  Sex: Male
  Weight: 75 kg

DRUGS (1)
  1. MIRALAX [Suspect]
     Active Substance: POLYETHYLENE GLYCOL 3350
     Indication: COLONOSCOPY
     Route: 048
     Dates: start: 20180601

REACTIONS (3)
  - Off label use [Unknown]
  - Product use in unapproved indication [None]
  - Expired product administered [None]

NARRATIVE: CASE EVENT DATE: 20180601
